FAERS Safety Report 8459560-6 (Version None)
Quarter: 2012Q2

REPORT INFORMATION
  Report Type: 
  Country: None (occurrence: None)
  Receive Date: 20120615
  Receipt Date: 20120607
  Transmission Date: 20120825
  Serious: Yes (Hospitalization, Other)
  Sender: FDA-Public Use
  Company Number: 135232

PATIENT
  Age: 26 Year
  Sex: Male

DRUGS (1)
  1. KETAMINE HCL INJ. 500MG/10ML - BEDFORD LABS, INC. [Suspect]

REACTIONS (8)
  - DRUG ABUSE [None]
  - ATONIC URINARY BLADDER [None]
  - HEPATOSPLENOMEGALY [None]
  - CHOLESTASIS [None]
  - HEPATIC CIRRHOSIS [None]
  - UROSEPSIS [None]
  - HEPATITIS [None]
  - HYDRONEPHROSIS [None]
